FAERS Safety Report 23777708 (Version 2)
Quarter: 2024Q2

REPORT INFORMATION
  Report Type: Report from Study
  Country: CA (occurrence: CA)
  Receive Date: 20240424
  Receipt Date: 20240621
  Transmission Date: 20240715
  Serious: Yes (Other)
  Sender: FDA-Public Use
  Company Number: CA-002147023-NVSC2024CA085248

PATIENT
  Age: 62 Year
  Sex: Female

DRUGS (1)
  1. KISQALI [Suspect]
     Active Substance: RIBOCICLIB
     Indication: Breast cancer metastatic
     Dosage: 600 MG, QD
     Route: 048
     Dates: start: 20240116

REACTIONS (10)
  - Neuropathy peripheral [Unknown]
  - Pain in extremity [Unknown]
  - Arthralgia [Unknown]
  - Fatigue [Unknown]
  - Nail infection [Unknown]
  - Alopecia [Unknown]
  - Nausea [Unknown]
  - Constipation [Unknown]
  - Muscle spasms [Unknown]
  - Nail disorder [Unknown]
